FAERS Safety Report 24444149 (Version 2)
Quarter: 2024Q4

REPORT INFORMATION
  Report Type: Report from Study
  Country: US (occurrence: US)
  Receive Date: 20241016
  Receipt Date: 20241017
  Transmission Date: 20250114
  Serious: No
  Sender: ROCHE
  Company Number: US-ROCHE-2629996

PATIENT
  Age: 44 Year
  Sex: Male

DRUGS (5)
  1. RITUXAN [Suspect]
     Active Substance: RITUXIMAB
     Indication: Multiple sclerosis
     Dosage: DATE OF SERVICES: 01/OCT/2021 (1000MG) 2 X 500MG VIALS, 15/OCT/2021 (1000MG)  2 X 500MG VIALS
     Route: 041
     Dates: start: 2016
  2. RITUXAN [Suspect]
     Active Substance: RITUXIMAB
     Route: 041
  3. CLONAZEPAM [Suspect]
     Active Substance: CLONAZEPAM
     Indication: Nystagmus
     Dosage: ONGOING: YES
     Route: 065
     Dates: start: 2007
  4. GABAPENTIN [Concomitant]
     Active Substance: GABAPENTIN
     Dosage: AM DOSE ;ONGOING: YES
     Dates: start: 2007
  5. GABAPENTIN [Concomitant]
     Active Substance: GABAPENTIN
     Dosage: AFTERNOON AND EVENING DOSE ;ONGOING: YES
     Dates: start: 2007

REACTIONS (3)
  - Off label use [Unknown]
  - Somnolence [Unknown]
  - Off label use [Unknown]
